FAERS Safety Report 8250466-4 (Version None)
Quarter: 2012Q2

REPORT INFORMATION
  Report Type: 
  Country: None (occurrence: None)
  Receive Date: 20120402
  Receipt Date: 20120402
  Transmission Date: 20120825
  Serious: No
  Sender: FDA-Public Use
  Company Number: None

PATIENT
  Age: 63 Year
  Sex: Male
  Weight: 90.718 kg

DRUGS (1)
  1. SOMA [Suspect]
     Indication: PAIN
     Dosage: 350MG
     Dates: start: 20090101, end: 20120330

REACTIONS (1)
  - ENURESIS [None]
